FAERS Safety Report 5103531-4 (Version None)
Quarter: 2006Q3

REPORT INFORMATION
  Report Type: 
  Country: None (occurrence: None)
  Receive Date: 20060913
  Receipt Date: 20060817
  Transmission Date: 20061208
  Serious: Yes (Other)
  Sender: FDA-Public Use
  Company Number: ZA-ROCHE-460211

PATIENT
  Age: 45 Year
  Sex: Male
  Weight: 73 kg

DRUGS (1)
  1. TAMIFLU [Suspect]
     Dosage: INDICATION REPORTED AS TREATMENT OF FLU.
     Route: 048

REACTIONS (1)
  - DIARRHOEA HAEMORRHAGIC [None]
